FAERS Safety Report 22618846 (Version 1)
Quarter: 2023Q2

REPORT INFORMATION
  Report Type: Spontaneous
  Country: IN (occurrence: IN)
  Receive Date: 20230620
  Receipt Date: 20230620
  Transmission Date: 20230722
  Serious: Yes (Hospitalization, Other)
  Sender: FDA-Public Use
  Company Number: IN-MACLEODS PHARMACEUTICALS US LTD-MAC2023041948

PATIENT

DRUGS (5)
  1. LIDOCAINE [Suspect]
     Active Substance: LIDOCAINE
     Indication: Local anaesthesia
     Dosage: 2 MILLILITER (1 %)
     Route: 061
  2. EPINEPHRINE\LIDOCAINE HYDROCHLORIDE [Suspect]
     Active Substance: EPINEPHRINE\LIDOCAINE HYDROCHLORIDE
     Indication: Anaesthesia
     Dosage: 20 MILLILITER(LIDOCAINE-ADRENALINE, 1.4%)
     Route: 065
  3. BUPIVACAINE [Suspect]
     Active Substance: BUPIVACAINE
     Indication: Anaesthesia
     Dosage: 20 MILLILITER
     Route: 065
  4. OXYGEN [Concomitant]
     Active Substance: OXYGEN
     Indication: Oxygen therapy
     Dosage: 5 LITER (BY FACE MASK AT 5 LITRE/MINUTE)
     Route: 065
  5. BETADINE [Concomitant]
     Active Substance: POVIDONE-IODINE
     Indication: Sterilisation
     Dosage: UNK
     Route: 065

REACTIONS (7)
  - Apnoea [Recovered/Resolved]
  - Haemodynamic instability [Recovered/Resolved]
  - Hypotonia [Recovered/Resolved]
  - Respiratory arrest [Recovered/Resolved]
  - Loss of consciousness [Recovered/Resolved]
  - Hypotension [Recovered/Resolved]
  - Bradycardia [Recovered/Resolved]
